FAERS Safety Report 8608806-X (Version None)
Quarter: 2012Q3

REPORT INFORMATION
  Report Type: 
  Country: None (occurrence: None)
  Receive Date: 20120821
  Receipt Date: 20120813
  Transmission Date: 20120928
  Serious: Yes (Hospitalization)
  Sender: FDA-Public Use
  Company Number: US-BAYER-2012-084955

PATIENT
  Age: 48 Year
  Sex: Female
  Weight: 73.469 kg

DRUGS (7)
  1. ASCORBIC ACID [Concomitant]
     Dosage: UNK
     Route: 048
     Dates: start: 20060129
  2. YASMIN [Suspect]
     Dosage: UNK
     Dates: start: 20020101, end: 20060101
  3. MORPHINE [Concomitant]
     Dosage: UNK
  4. IBUPROFEN [Concomitant]
     Dosage: UNK
     Route: 048
     Dates: start: 20060128
  5. NITROGLYCERIN [Concomitant]
     Dosage: UNK
     Route: 060
  6. LIPITOR [Concomitant]
     Dosage: UNK
  7. MULTI-VITAMINS [Concomitant]
     Dosage: UNK
     Route: 048
     Dates: start: 20060129

REACTIONS (8)
  - DYSPNOEA [None]
  - MUSCULOSKELETAL PAIN [None]
  - MYOCARDIAL INFARCTION [None]
  - CARDIAC DISORDER [None]
  - NAUSEA [None]
  - CHEST PAIN [None]
  - CHEST DISCOMFORT [None]
  - HYPERHIDROSIS [None]
